FAERS Safety Report 19779416 (Version 1)
Quarter: 2021Q3

REPORT INFORMATION
  Report Type: Spontaneous
  Country: DE (occurrence: DE)
  Receive Date: 20210902
  Receipt Date: 20210902
  Transmission Date: 20211014
  Serious: Yes (Other)
  Sender: FDA-Public Use
  Company Number: DE-TEVA-2021-DE-1947002

PATIENT
  Age: 51 Year
  Sex: Male

DRUGS (10)
  1. FOLINIC ACID [Suspect]
     Active Substance: LEUCOVORIN
     Indication: MALIGNANT MELANOMA
     Dates: start: 201708
  2. IPILIMUMAB [Suspect]
     Active Substance: IPILIMUMAB
     Indication: MALIGNANT MELANOMA
     Route: 065
     Dates: start: 2017, end: 201710
  3. HYDROCORTISONE. [Concomitant]
     Active Substance: HYDROCORTISONE
     Indication: PRODUCT USED FOR UNKNOWN INDICATION
     Route: 065
  4. FLUOROURACIL. [Suspect]
     Active Substance: FLUOROURACIL
     Indication: COLON CANCER
     Route: 065
     Dates: start: 2013
  5. FLUOROURACIL. [Suspect]
     Active Substance: FLUOROURACIL
     Indication: MALIGNANT MELANOMA
     Dates: start: 201708
  6. FOLINIC ACID [Suspect]
     Active Substance: LEUCOVORIN
     Indication: COLON CANCER
     Route: 065
     Dates: start: 2013
  7. OXALIPLATIN. [Suspect]
     Active Substance: OXALIPLATIN
     Indication: MALIGNANT MELANOMA
     Dates: start: 201708
  8. NIVOLUMAB [Suspect]
     Active Substance: NIVOLUMAB
     Indication: MALIGNANT MELANOMA
     Route: 065
     Dates: start: 2017, end: 201710
  9. L?THYROXIN [Concomitant]
     Active Substance: LEVOTHYROXINE SODIUM
     Indication: PRODUCT USED FOR UNKNOWN INDICATION
     Route: 065
  10. OXALIPLATIN. [Suspect]
     Active Substance: OXALIPLATIN
     Indication: COLON CANCER
     Route: 065
     Dates: start: 2013

REACTIONS (3)
  - Immune-mediated hypophysitis [Unknown]
  - Azoospermia [Unknown]
  - Hepatitis [Unknown]

NARRATIVE: CASE EVENT DATE: 2017
